FAERS Safety Report 8186585-0 (Version None)
Quarter: 2012Q1

REPORT INFORMATION
  Report Type: 
  Country: None (occurrence: None)
  Receive Date: 20120305
  Receipt Date: 20120305
  Transmission Date: 20120608
  Serious: No
  Sender: FDA-Public Use
  Company Number: None

PATIENT
  Sex: Male
  Weight: 64.41 kg

DRUGS (3)
  1. ELOXATIN [Suspect]
     Dosage: 310 MG
  2. LEUCOVORIN CALCIUM [Suspect]
     Dosage: 1440 MG
  3. FLUOROURACIL [Suspect]
     Dosage: 1450 MG

REACTIONS (3)
  - LEUKOPENIA [None]
  - NEUTROPENIA [None]
  - ANAEMIA [None]
